FAERS Safety Report 6815743-X (Version None)
Quarter: 2010Q3

REPORT INFORMATION
  Report Type: 
  Country: None (occurrence: None)
  Receive Date: 20100702
  Receipt Date: 20100604
  Transmission Date: 20110219
  Serious: Yes (Hospitalization)
  Sender: FDA-Public Use
  Company Number: US-ROCHE-702985

PATIENT
  Sex: Male
  Weight: 87.1 kg

DRUGS (13)
  1. BEVACIZUMAB [Suspect]
     Indication: PROSTATE CANCER
     Route: 065
  2. TEMSIROLIMUS [Suspect]
     Indication: PROSTATE CANCER
     Dosage: ONLY DOSE RECEIVED.
     Route: 065
     Dates: start: 20100421
  3. METOPROLOL TARTRATE [Concomitant]
     Dates: start: 20010131
  4. LASIX [Concomitant]
     Dates: start: 20081031
  5. TRELSTAR DEPOT [Concomitant]
     Route: 030
     Dates: start: 20090520
  6. POTASSIUM CHLORIDE [Concomitant]
     Dates: start: 20090918
  7. OXYCODONE HCL [Concomitant]
     Dosage: 5 MG TAB 1 TO 2 TAB EVRY 6 HOURLY PRN
     Dates: start: 20100205
  8. ACCUPRIL [Concomitant]
     Dates: start: 20100226
  9. PRILOSEC [Concomitant]
     Dates: start: 20100226
  10. OXYCONTIN [Concomitant]
     Dates: start: 20100329
  11. BACTROBAN [Concomitant]
     Dosage: BACTROBAN NASAL 2% OINTMENT TO BOTH NARES
     Dates: start: 20100430
  12. AYR SALINE NASAL GEL [Concomitant]
     Dosage: NASAL SPRAY TO NARES
     Dates: start: 20100430
  13. SODIUM CHLORIDE NASAL SPRAY [Concomitant]
     Dosage: NASAL SPRAY PRN
     Dates: start: 20100430

REACTIONS (3)
  - AMNESIA [None]
  - ASTHENIA [None]
  - GAIT DISTURBANCE [None]
